FAERS Safety Report 5523346-2 (Version None)
Quarter: 2007Q4

REPORT INFORMATION
  Report Type: 
  Country: None (occurrence: None)
  Receive Date: 20071119
  Receipt Date: 20071119
  Transmission Date: 20080405
  Serious: No
  Sender: FDA-Public Use
  Company Number: None

PATIENT

DRUGS (1)
  1. LITHIUM CARBONATE [Suspect]

REACTIONS (14)
  - ANAEMIA [None]
  - CONDITION AGGRAVATED [None]
  - GASTROINTESTINAL HAEMORRHAGE [None]
  - HYPERNATRAEMIA [None]
  - MEDICATION ERROR [None]
  - NEPHROGENIC DIABETES INSIPIDUS [None]
  - PNEUMONIA [None]
  - REFUSAL OF TREATMENT BY PATIENT [None]
  - SENSORY DISTURBANCE [None]
  - SEPSIS [None]
  - SUICIDAL IDEATION [None]
  - THERAPEUTIC AGENT TOXICITY [None]
  - TREATMENT NONCOMPLIANCE [None]
  - URINE OSMOLARITY DECREASED [None]
